FAERS Safety Report 5025206-2 (Version None)
Quarter: 2006Q2

REPORT INFORMATION
  Report Type: 
  Country: None (occurrence: None)
  Receive Date: 20060613
  Receipt Date: 20060608
  Transmission Date: 20061013
  Serious: Yes (Hospitalization)
  Sender: FDA-Public Use
  Company Number: FR-GLAXOSMITHKLINE-B0426880A

PATIENT
  Age: 70 Year
  Sex: Female

DRUGS (3)
  1. AUGMENTIN '125' [Suspect]
     Route: 065
     Dates: start: 20060415, end: 20060419
  2. PROFENID [Suspect]
     Route: 065
     Dates: start: 20060409, end: 20060412
  3. NEXIUM [Concomitant]
     Route: 065

REACTIONS (2)
  - SKIN LESION [None]
  - TOXIC SKIN ERUPTION [None]
